FAERS Safety Report 19119725 (Version 3)
Quarter: 2021Q2

REPORT INFORMATION
  Report Type: Spontaneous
  Country: CA (occurrence: CA)
  Receive Date: 20210412
  Receipt Date: 20210423
  Transmission Date: 20210717
  Serious: Yes (Other)
  Sender: FDA-Public Use
  Company Number: CA-BEH-2021130233

PATIENT
  Age: 64 Year
  Sex: Female
  Weight: 74 kg

DRUGS (4)
  1. PRIVIGEN [Suspect]
     Active Substance: HUMAN IMMUNOGLOBULIN G
     Dosage: 50 MILLILITER, FRACTION: 4/4, TOT
     Route: 042
     Dates: start: 20200805, end: 20200805
  2. PRIVIGEN [Suspect]
     Active Substance: HUMAN IMMUNOGLOBULIN G
     Dosage: UNK
     Route: 065
     Dates: start: 20200812, end: 20200812
  3. PRIVIGEN [Suspect]
     Active Substance: HUMAN IMMUNOGLOBULIN G
     Indication: MYELOSUPPRESSION
     Dosage: 100 MILLILITER, FRACTION: 1/2, TOT
     Route: 042
     Dates: start: 20200805, end: 20200805
  4. PRIVIGEN [Suspect]
     Active Substance: HUMAN IMMUNOGLOBULIN G
     Dosage: 50 MILLILITER, FRACTION: 4/4, TOT
     Route: 042
     Dates: start: 20200805, end: 20200805

REACTIONS (6)
  - Acute pulmonary oedema [Unknown]
  - Hypoxia [Unknown]
  - Hypertension [Unknown]
  - Tachypnoea [Unknown]
  - Tachycardia [Unknown]
  - Dyspnoea [Unknown]

NARRATIVE: CASE EVENT DATE: 20200805
